FAERS Safety Report 7574818-0 (Version None)
Quarter: 2011Q2

REPORT INFORMATION
  Report Type: 
  Country: None (occurrence: None)
  Receive Date: 20110627
  Receipt Date: 20110602
  Transmission Date: 20111010
  Serious: Yes (Other)
  Sender: FDA-Public Use
  Company Number: US-BAYER-201037229NA

PATIENT
  Sex: Male

DRUGS (31)
  1. PLAVIX [Concomitant]
     Dosage: 75MG DAILY
     Route: 048
  2. LASIX [Concomitant]
     Dosage: 20 MG
     Route: 042
     Dates: start: 20031023, end: 20031023
  3. PRANDIN [Concomitant]
     Dosage: 1MG IN MORNING AND AT NOON, 2MG AT NIGHT
     Route: 048
  4. PHENYLEPHRINE HCL [Concomitant]
     Dosage: UNK
     Route: 041
     Dates: start: 20031023, end: 20031023
  5. GLUCOTROL [Concomitant]
  6. INSULIN [Concomitant]
     Dosage: 30 UNITS
     Route: 042
     Dates: start: 20031023, end: 20031023
  7. LASIX [Concomitant]
     Dosage: 40MG AS NEEDED
     Route: 048
  8. LIPITOR [Concomitant]
     Dosage: 40MG DAILY
  9. COREG [Concomitant]
     Dosage: 6.25MG TWICE DAILY
  10. PROTAMINE SULFATE [Concomitant]
     Dosage: 350 MG
     Route: 042
     Dates: start: 20031023, end: 20031023
  11. TRASYLOL [Suspect]
     Dosage: 200 CC OVER 5 HOURS (INFUSION RATE UNKNOWN)
     Dates: start: 20031023, end: 20031023
  12. LISINOPRIL [Concomitant]
     Dosage: 20MG TWICE DAILY
     Route: 048
  13. VANCOMYCIN [Concomitant]
     Dosage: 3 G
     Route: 042
     Dates: start: 20031023, end: 20031023
  14. NITROGLYCERIN [Concomitant]
     Dosage: DRIP
     Route: 041
     Dates: start: 20031023
  15. ZANTAC [Concomitant]
     Dosage: 50 MG
     Route: 042
     Dates: start: 20031023, end: 20031023
  16. TRASYLOL [Suspect]
     Indication: CORONARY ARTERY BYPASS
     Dosage: UNK
     Dates: start: 20011001, end: 20011015
  17. AVANDIA [Concomitant]
  18. DILTIAZEM [Concomitant]
     Dosage: 10/HR
     Route: 042
     Dates: start: 20031023, end: 20031023
  19. METFORMIN HCL [Concomitant]
     Dosage: 1000MG TWICE DAILY
     Route: 048
  20. ASPIRIN [Concomitant]
     Dosage: 325MG DAILY
     Route: 048
  21. DOPAMINE HCL [Concomitant]
     Dosage: 10/HR
     Route: 042
     Dates: start: 20031023
  22. THROMBIN LOCAL SOLUTION [Concomitant]
     Dosage: 5000 UNITS X 5
     Route: 042
     Dates: start: 20031023, end: 20031023
  23. REGLAN [Concomitant]
     Dosage: 10 MG
     Route: 042
     Dates: start: 20031023, end: 20031023
  24. PRIMACOR [Concomitant]
     Dosage: 0.5 UG/KG/MIN
     Route: 042
     Dates: start: 20031023, end: 20031023
  25. PLATELETS [Concomitant]
     Dosage: 4 U, UNK
     Dates: start: 20031023
  26. VERSED [Concomitant]
     Dosage: 2 MG
     Route: 042
     Dates: start: 20031023, end: 20031023
  27. INSULIN [Concomitant]
     Dosage: 30 UNITS
     Route: 042
  28. BENADRYL [ACRIVASTINE] [Concomitant]
     Dosage: 25 MG
     Dates: start: 20031023, end: 20031023
  29. LIDOCAINE [Concomitant]
     Dosage: 200 MG
     Route: 042
     Dates: start: 20031023, end: 20031023
  30. FRESH FROZEN PLASMA [Concomitant]
     Dosage: 2 U, UNK
     Dates: start: 20031023
  31. HEPARIN [Concomitant]
     Dosage: 29,000 UNITS
     Route: 042
     Dates: start: 20031023, end: 20031023

REACTIONS (9)
  - EMOTIONAL DISTRESS [None]
  - RENAL FAILURE ACUTE [None]
  - ANXIETY [None]
  - INJURY [None]
  - DEPRESSION [None]
  - PAIN [None]
  - FEAR [None]
  - ANHEDONIA [None]
  - RENAL FAILURE [None]
